FAERS Safety Report 9966595 (Version 1)
Quarter: 2014Q1

REPORT INFORMATION
  Report Type: Report from Study
  Country: PR (occurrence: PR)
  Receive Date: 20140305
  Receipt Date: 20140305
  Transmission Date: 20141002
  Serious: No
  Sender: FDA-Public Use
  Company Number: PR-ABBVIE-13P-131-1128153-00

PATIENT
  Age: 51 Year
  Sex: Female
  Weight: 63.56 kg

DRUGS (6)
  1. HUMIRA [Suspect]
     Indication: RHEUMATOID ARTHRITIS
     Route: 058
  2. SYNTHROID [Concomitant]
     Indication: HYPOTHYROIDISM
     Route: 048
  3. COZAAR [Concomitant]
     Indication: HYPERTENSION
     Route: 048
  4. SKELAXIN [Concomitant]
     Indication: PAIN
  5. MOBIC [Concomitant]
     Indication: INFLAMMATION
     Dosage: 1 FOR 3 DAYS EVERY OTHER WEEK
     Route: 048
  6. MEDROL COMP [Concomitant]
     Indication: PRODUCT USED FOR UNKNOWN INDICATION
     Dosage: 1 FOR 3 DAYS EVERY OTHER WEEK
     Route: 048

REACTIONS (1)
  - Viral infection [Not Recovered/Not Resolved]
